FAERS Safety Report 15711584 (Version 1)
Quarter: 2018Q4

REPORT INFORMATION
  Report Type: Spontaneous
  Country: FR (occurrence: FR)
  Receive Date: 20181212
  Receipt Date: 20181212
  Transmission Date: 20190205
  Serious: Yes (Hospitalization)
  Sender: FDA-Public Use
  Company Number: FR-ZYDUS-030940

PATIENT
  Age: 17 Year
  Sex: Male
  Weight: 82 kg

DRUGS (11)
  1. CEFPODOXIME/CEFPODOXIME PROXETIL [Suspect]
     Active Substance: CEFPODOXIME PROXETIL
     Indication: SUICIDE ATTEMPT
     Route: 048
     Dates: start: 20180701, end: 20180701
  2. LOPERAMIDE [Suspect]
     Active Substance: LOPERAMIDE
     Indication: SUICIDE ATTEMPT
     Route: 048
     Dates: start: 20180701, end: 20180701
  3. AZITHROMYCIN ANHYDROUS. [Suspect]
     Active Substance: AZITHROMYCIN ANHYDROUS
     Indication: SUICIDE ATTEMPT
     Dosage: 1500 MG, TOTAL
     Route: 048
     Dates: start: 20180701, end: 20180701
  4. ESCITALOPRAM [Suspect]
     Active Substance: ESCITALOPRAM OXALATE
     Indication: SUICIDE ATTEMPT
     Dosage: OVERDOSE: 140 MG, 1 DAY
     Route: 048
     Dates: start: 20180701, end: 20180701
  5. TRIMEBUTINE [Suspect]
     Active Substance: TRIMEBUTINE
     Indication: SUICIDE ATTEMPT
     Dosage: 14000 MG, TOTAL
     Route: 048
     Dates: start: 20180701, end: 20180701
  6. CHLOROFORM/GLYCEROL/HERBAL EXTRACT NOS/ISOAMYL ACETATE/MENTHOL [Suspect]
     Active Substance: HERBALS
     Indication: SUICIDE ATTEMPT
     Route: 048
     Dates: start: 20180701, end: 20180701
  7. AMOXICILLIN SODIUM/CLAVULANATE POTASSIUM [Suspect]
     Active Substance: AMOXICILLIN\CLAVULANATE POTASSIUM
     Indication: SUICIDE ATTEMPT
     Dosage: 6 G, 1 DAY
     Route: 048
     Dates: start: 20180701, end: 20180701
  8. OXAZEPAM. [Suspect]
     Active Substance: OXAZEPAM
     Indication: SUICIDE ATTEMPT
     Dosage: 310 MG, TOTAL
     Route: 048
     Dates: start: 20180701, end: 20180701
  9. PREDNISOLONE. [Suspect]
     Active Substance: PREDNISOLONE
     Indication: SUICIDE ATTEMPT
     Dosage: 200 MG, TOTAL
     Route: 048
     Dates: start: 20180701, end: 20180701
  10. PARACETAMOL [Suspect]
     Active Substance: ACETAMINOPHEN
     Indication: SUICIDE ATTEMPT
     Route: 048
     Dates: start: 20180701, end: 20180701
  11. INORIAL [Suspect]
     Active Substance: BILASTINE
     Indication: SUICIDE ATTEMPT
     Route: 048
     Dates: start: 20180701, end: 20180701

REACTIONS (6)
  - Intentional overdose [Unknown]
  - Mydriasis [Recovered/Resolved]
  - Vomiting [Recovered/Resolved]
  - Somnolence [Recovered/Resolved]
  - Malaise [Recovered/Resolved]
  - Toxicity to various agents [Recovered/Resolved]

NARRATIVE: CASE EVENT DATE: 20180701
